FAERS Safety Report 8534319-X (Version None)
Quarter: 2012Q2

REPORT INFORMATION
  Report Type: 
  Country: None (occurrence: None)
  Receive Date: 20120412
  Receipt Date: 20090903
  Transmission Date: 20120825
  Serious: Yes (Hospitalization)
  Sender: FDA-Public Use
  Company Number: PHEH2009US09570

PATIENT
  Age: 51 Year
  Sex: Male

DRUGS (2)
  1. CLOZARIL [Suspect]
     Indication: SCHIZOPHRENIA
     Dosage: DOSE INCREASED FROM 25MG TO 250MG, ORAL
     Route: 048
     Dates: start: 20090716, end: 20090731
  2. PROZAC [Concomitant]

REACTIONS (2)
  - ASPIRATION PLEURAL CAVITY [None]
  - PNEUMONIA [None]
